FAERS Safety Report 6006177-9 (Version None)
Quarter: 2008Q4

REPORT INFORMATION
  Report Type: 
  Country: None (occurrence: None)
  Receive Date: 20081216
  Receipt Date: 20081216
  Transmission Date: 20090506
  Serious: Yes (Hospitalization)
  Sender: FDA-Public Use
  Company Number: None

PATIENT
  Sex: Male
  Weight: 92.0802 kg

DRUGS (15)
  1. CYCLOBENZAPRINE [Suspect]
     Indication: MUSCLE SPASMS
     Dosage: 10 MG TID PO
     Route: 048
     Dates: start: 20080304, end: 20080402
  2. MYLANTA [Concomitant]
  3. TYLENOL [Concomitant]
  4. DULCOLAX [Concomitant]
  5. SELSUN LOTION [Concomitant]
  6. SEROQUEL [Concomitant]
  7. HYDROCORTISONE [Concomitant]
  8. RESTORIL [Concomitant]
  9. HALOPERIDOL [Concomitant]
  10. VALPROIC ACID [Concomitant]
  11. PYRIDOXINE [Concomitant]
  12. NAPROXEN [Concomitant]
  13. GABAPENTIN [Concomitant]
  14. DIPHENHYDRAMINE HCL [Concomitant]
  15. ISONIAZID [Concomitant]

REACTIONS (2)
  - DELIRIUM [None]
  - TACHYCARDIA [None]
